FAERS Safety Report 16860133 (Version 1)
Quarter: 2019Q3

REPORT INFORMATION
  Report Type: Spontaneous
  Country: US (occurrence: US)
  Receive Date: 20190927
  Receipt Date: 20190927
  Transmission Date: 20191005
  Serious: Yes (Other)
  Sender: FDA-Public Use
  Company Number: None

PATIENT
  Age: 96 Year
  Sex: Female
  Weight: 49.9 kg

DRUGS (21)
  1. MINOCYCLINE [Suspect]
     Active Substance: MINOCYCLINE HYDROCHLORIDE
     Indication: EYE INFECTION
     Dosage: ?          QUANTITY:1 DF DOSAGE FORM;?
     Route: 061
     Dates: start: 20180830, end: 20190314
  2. ALPHA-D-GALACTOSIDASE [Concomitant]
  3. ELIQUIS [Concomitant]
     Active Substance: APIXABAN
  4. CITRUCEL [Concomitant]
     Active Substance: METHYLCELLULOSE (4000 MPA.S)
  5. XYLIGEL [Suspect]
     Active Substance: DEVICE\XYLITOL
     Indication: DRY MOUTH
  6. CARBOXYMETHYLCELLULOSE (REFRESH PLUS) [Concomitant]
  7. ESTROGENS, CONJUGATED (PREMARIN) [Concomitant]
  8. LASIX [Concomitant]
     Active Substance: FUROSEMIDE
  9. METOPROLOL SUCCINATE (TOPROL-XL) [Concomitant]
  10. VITAMIN E [Concomitant]
     Active Substance: .ALPHA.-TOCOPHEROL
  11. CALCIUM CARBONATE-VITAMIN D3 (CALTRATE 600+D) [Concomitant]
  12. LATANOPROST (XALATAN) [Concomitant]
  13. HERBAL SUPPLEMENT TART CHERRY [Concomitant]
  14. LIFITEGRAST (XIIDRA) [Concomitant]
  15. PROTONIX [Concomitant]
     Active Substance: PANTOPRAZOLE SODIUM
  16. FOLIC ACID/MULTIVIT-MIN/LUTEIN CENTRUM SILVER [Concomitant]
  17. FOSAMAX [Concomitant]
     Active Substance: ALENDRONATE SODIUM
  18. BIOTIN [Concomitant]
     Active Substance: BIOTIN
  19. HERBAL SUPPLEMENT CRANACTIN [Concomitant]
  20. KETOCONAZOLE (NIZORAL) [Concomitant]
  21. METRONIDAZOLE (NORITATE) [Concomitant]

REACTIONS (3)
  - Drug interaction [None]
  - Skin discolouration [None]
  - Skin lesion [None]

NARRATIVE: CASE EVENT DATE: 20190314
